FAERS Safety Report 4478440-4 (Version None)
Quarter: 2004Q4

REPORT INFORMATION
  Report Type: 
  Country: None (occurrence: None)
  Receive Date: 20041019
  Receipt Date: 20041004
  Transmission Date: 20050328
  Serious: Yes (Hospitalization)
  Sender: FDA-Public Use
  Company Number: PHRM2004FR03019

PATIENT
  Age: 82 Year
  Sex: Female
  Weight: 58 kg

DRUGS (5)
  1. SALAGEN [Suspect]
     Indication: MEDICATION ERROR
     Dosage: 4-5 TAB/DAY
     Route: 048
     Dates: start: 20040601, end: 20040820
  2. SALAGEN [Suspect]
     Dosage: 2 TAB/DAY
     Dates: start: 20020101, end: 20040601
  3. FLECAINE [Concomitant]
  4. TORENTAL [Concomitant]
     Route: 048
  5. NEURONTIN [Concomitant]
     Route: 048

REACTIONS (10)
  - ABDOMINAL PAIN [None]
  - BLOOD PRESSURE INCREASED [None]
  - BLOOD PRESSURE SYSTOLIC INCREASED [None]
  - CHILLS [None]
  - DIARRHOEA [None]
  - FOOD INTOLERANCE [None]
  - GASTROINTESTINAL DISORDER [None]
  - HYPERHIDROSIS [None]
  - HYPOTHERMIA [None]
  - VOMITING [None]
